FAERS Safety Report 4738266-0 (Version None)
Quarter: 2005Q3

REPORT INFORMATION
  Report Type: 
  Country: None (occurrence: None)
  Receive Date: 20050803
  Receipt Date: 20050722
  Transmission Date: 20060218
  Serious: Yes (Hospitalization)
  Sender: FDA-Public Use
  Company Number: 11900

PATIENT
  Age: 66 Year
  Sex: Male

DRUGS (8)
  1. CISPLATIN [Suspect]
     Indication: NON-SMALL CELL LUNG CANCER
     Dosage: 80 MG/M2 PER_CYCLE, IV
     Route: 042
     Dates: start: 20050329
  2. VINORELBINE [Suspect]
     Dosage: 25 MG/M2 IV
     Route: 042
     Dates: start: 20050329
  3. MORPHINE [Concomitant]
  4. DANTHRON/POLOXAMER [Concomitant]
  5. LANSOPRAZOLE [Concomitant]
  6. GLICLAZIDE [Concomitant]
  7. CIPROFLOXACIN HCL [Concomitant]
  8. CLARITHROMYCIN [Concomitant]

REACTIONS (3)
  - ANAEMIA [None]
  - LOWER RESPIRATORY TRACT INFECTION [None]
  - NEUTROPENIA [None]
